FAERS Safety Report 7516122-2 (Version None)
Quarter: 2011Q2

REPORT INFORMATION
  Report Type: 
  Country: None (occurrence: None)
  Receive Date: 20110601
  Receipt Date: 20110527
  Transmission Date: 20111010
  Serious: No
  Sender: FDA-Public Use
  Company Number: DE-ROCHE-777868

PATIENT
  Sex: Female
  Weight: 75 kg

DRUGS (2)
  1. BONIVA [Suspect]
     Indication: OSTEOPOROSIS POSTMENOPAUSAL
     Route: 042
     Dates: start: 20110121, end: 20110121
  2. VITAMIN D [Concomitant]
     Indication: OSTEOPOROSIS
     Dosage: FRE: 1X DAY
     Route: 048

REACTIONS (4)
  - GINGIVAL RECESSION [None]
  - HEADACHE [None]
  - ENAMEL ANOMALY [None]
  - ARTHRALGIA [None]
